FAERS Safety Report 14157111 (Version 1)
Quarter: 2017Q4

REPORT INFORMATION
  Report Type: Spontaneous
  Country: US (occurrence: US)
  Receive Date: 20171103
  Receipt Date: 20171103
  Transmission Date: 20180321
  Serious: Yes (Hospitalization, Other)
  Sender: FDA-Public Use
  Company Number: US-LUNDBECK-DKLU2039243

PATIENT
  Age: 25 Year
  Sex: Male

DRUGS (3)
  1. NORTHERA [Suspect]
     Active Substance: DROXIDOPA
     Route: 048
  2. NORTHERA [Suspect]
     Active Substance: DROXIDOPA
     Indication: ORTHOSTATIC HYPOTENSION
     Route: 048
  3. NORTHERA [Suspect]
     Active Substance: DROXIDOPA
     Indication: AUTONOMIC NEUROPATHY
     Route: 048

REACTIONS (10)
  - Pain [Unknown]
  - Nausea [Recovering/Resolving]
  - Blood potassium decreased [Unknown]
  - Blood pressure fluctuation [Unknown]
  - Headache [Recovering/Resolving]
  - Vomiting [Unknown]
  - Dehydration [Unknown]
  - Blood pressure increased [Unknown]
  - Malaise [Unknown]
  - White blood cell count increased [Unknown]

NARRATIVE: CASE EVENT DATE: 20171019
